FAERS Safety Report 15558728 (Version 2)
Quarter: 2019Q4

REPORT INFORMATION
  Report Type: Report from Study
  Country: None (occurrence: RO)
  Receive Date: 20181029
  Receipt Date: 20191105
  Transmission Date: 20200122
  Serious: Yes (Hospitalization, Other)
  Sender: FDA-Public Use
  Company Number: RO-ABBVIE-18K-135-2530997-00

PATIENT
  Sex: Male

DRUGS (2)
  1. HUMIRA [Suspect]
     Active Substance: ADALIMUMAB
     Dosage: DOSE INCREASED
     Route: 058
     Dates: start: 201910
  2. HUMIRA [Suspect]
     Active Substance: ADALIMUMAB
     Indication: PSORIASIS
     Route: 058
     Dates: start: 20171115

REACTIONS (2)
  - Drug ineffective [Not Recovered/Not Resolved]
  - Hepatitis B virus test positive [Recovered/Resolved]

NARRATIVE: CASE EVENT DATE: 2017
